FAERS Safety Report 9308980 (Version 4)
Quarter: 2014Q3

REPORT INFORMATION
  Report Type: Report from Study
  Country: JP (occurrence: JP)
  Receive Date: 20130524
  Receipt Date: 20140912
  Transmission Date: 20150326
  Serious: Yes (Life-Threatening, Other)
  Sender: FDA-Public Use
  Company Number: JP-GILEAD-2013-0075791

PATIENT
  Age: 72 Year
  Sex: Male
  Weight: 47 kg

DRUGS (6)
  1. AMBRISENTAN [Suspect]
     Active Substance: AMBRISENTAN
     Indication: PULMONARY ARTERIAL HYPERTENSION
     Dosage: 2.5MG PER DAY
     Route: 048
     Dates: start: 20130501, end: 20130510
  2. ALDACTONE [Concomitant]
     Active Substance: SPIRONOLACTONE
     Dosage: 50MG PER DAY
     Route: 048
  3. ADCIRCA [Concomitant]
     Active Substance: TADALAFIL
     Indication: PULMONARY ARTERIAL HYPERTENSION
     Dosage: UNK
     Route: 048
     Dates: start: 20130206
  4. SAMSCA [Concomitant]
     Active Substance: TOLVAPTAN
     Dosage: 15MG PER DAY
     Route: 048
  5. ALDACTONE [Concomitant]
     Active Substance: SPIRONOLACTONE
     Dosage: 50MG PER DAY
     Route: 048
  6. SAMSCA [Concomitant]
     Active Substance: TOLVAPTAN
     Dosage: 15MG PER DAY
     Route: 048

REACTIONS (1)
  - Anuria [Recovered/Resolved]

NARRATIVE: CASE EVENT DATE: 20130506
